FAERS Safety Report 8559452-8 (Version None)
Quarter: 2012Q3

REPORT INFORMATION
  Report Type: 
  Country: None (occurrence: None)
  Receive Date: 20120802
  Receipt Date: 20120727
  Transmission Date: 20120928
  Serious: Yes (Other)
  Sender: FDA-Public Use
  Company Number: FR-B.I. PHARMACEUTICALS,INC./RIDGEFIELD-2012-FF-00426FF

PATIENT
  Sex: Male

DRUGS (9)
  1. ACUPAN [Concomitant]
     Route: 042
     Dates: start: 20120101, end: 20120101
  2. ACETAMINOPHEN [Concomitant]
     Route: 048
     Dates: start: 20120115
  3. KETOPROFEN [Concomitant]
     Dosage: 300 MG
     Route: 042
     Dates: start: 20120111, end: 20120111
  4. PANTOPRAZOLE [Concomitant]
     Dosage: 40 MG
     Route: 048
     Dates: start: 20120110, end: 20120112
  5. SUFENTANIL CITRATE [Concomitant]
     Route: 042
     Dates: start: 20120110, end: 20120114
  6. ACETAMINOPHEN [Concomitant]
     Dosage: 4 G
     Route: 042
     Dates: start: 20120110, end: 20120114
  7. CHIROCAINE [Concomitant]
     Route: 042
     Dates: start: 20120110, end: 20120114
  8. CATAPRES [Suspect]
     Indication: HYPERTENSION
     Route: 048
     Dates: start: 20120110, end: 20120118
  9. LOVENOX [Concomitant]
     Route: 058
     Dates: start: 20120101

REACTIONS (2)
  - RASH MACULO-PAPULAR [None]
  - SKIN EXFOLIATION [None]
